FAERS Safety Report 14652740 (Version 1)
Quarter: 2018Q1

REPORT INFORMATION
  Report Type: Spontaneous
  Country: FR (occurrence: FR)
  Receive Date: 20180319
  Receipt Date: 20180319
  Transmission Date: 20180509
  Serious: Yes (Hospitalization)
  Sender: FDA-Public Use
  Company Number: FR-ABBVIE-18P-056-2286190-00

PATIENT
  Age: 27 Year
  Sex: Male

DRUGS (6)
  1. NOZINAN [Suspect]
     Active Substance: LEVOMEPROMAZINE
     Indication: MANIA
     Route: 048
     Dates: start: 20151102, end: 20151102
  2. DEPAKOTE [Suspect]
     Active Substance: DIVALPROEX SODIUM
     Indication: BIPOLAR DISORDER
     Route: 048
  3. LOXAPAC [Suspect]
     Active Substance: LOXAPINE
     Indication: MANIA
     Route: 048
     Dates: start: 20151102, end: 20151102
  4. LEVOMEPROMAZINE [Suspect]
     Active Substance: LEVOMEPROMAZINE
     Indication: MANIA
     Route: 048
     Dates: start: 20151102, end: 20151102
  5. RISPERDAL [Suspect]
     Active Substance: RISPERIDONE
     Indication: BIPOLAR DISORDER
     Route: 048
     Dates: end: 20151102
  6. ABILIFY [Suspect]
     Active Substance: ARIPIPRAZOLE
     Indication: MANIA
     Route: 048
     Dates: start: 20151102, end: 20151102

REACTIONS (2)
  - Hyperthermia [Unknown]
  - Extrapyramidal disorder [Unknown]

NARRATIVE: CASE EVENT DATE: 20151102
